FAERS Safety Report 9768584 (Version 2)
Quarter: 2013Q4

REPORT INFORMATION
  Report Type: Spontaneous
  Country: US (occurrence: US)
  Receive Date: 20131218
  Receipt Date: 20131218
  Transmission Date: 20140711
  Serious: Yes (Disabling)
  Sender: FDA-Public Use
  Company Number: US-GE HEALTHCARE MEDICAL DIAGNOSTICS-OSCN-PR-0808S-0499

PATIENT
  Age: 57 Year
  Sex: Male

DRUGS (3)
  1. OMNISCAN [Suspect]
     Indication: THROMBOSIS
     Dates: start: 20050901, end: 20050901
  2. OMNISCAN [Suspect]
     Indication: OSTEOMYELITIS
     Dates: start: 20050629, end: 20050629
  3. MAGNEVIST [Suspect]
     Indication: PRODUCT USED FOR UNKNOWN INDICATION
     Route: 042
     Dates: start: 20061109, end: 20061109

REACTIONS (1)
  - Nephrogenic systemic fibrosis [Not Recovered/Not Resolved]
